FAERS Safety Report 21685668 (Version 3)
Quarter: 2022Q4

REPORT INFORMATION
  Report Type: Report from Study
  Country: CZ (occurrence: CZ)
  Receive Date: 20221206
  Receipt Date: 20221228
  Transmission Date: 20230112
  Serious: Yes (Disabling, Other)
  Sender: FDA-Public Use
  Company Number: CZ-002147023-NVSC2022CZ152524

PATIENT
  Sex: Female
  Weight: 75 kg

DRUGS (8)
  1. KESIMPTA [Suspect]
     Active Substance: OFATUMUMAB
     Indication: Multiple sclerosis
     Dosage: 20 MG (WEEKLY FOR 3 WEEKS, ONE WEEK BREAK, ONE WEEKLY ADMINISTRATION, THEN 1X EVERY CALENDAR MONTH)
     Route: 058
     Dates: start: 20220627
  2. SOLU-MEDROL [Concomitant]
     Active Substance: METHYLPREDNISOLONE SODIUM SUCCINATE
     Indication: Multiple sclerosis
     Dosage: UNK
     Route: 042
     Dates: start: 20220708
  3. MILGAMMA [Concomitant]
     Indication: Product used for unknown indication
     Dosage: UNK, PRN (TABLETS) (TBL/INJECTIONS ALTERNATE AS AGREED WITH HER DOCTOR; TOOK IRREGULARLY AS NEEDED)
     Route: 065
  4. MILGAMMA [Concomitant]
     Dosage: UNK  UNK, PRN (INJECTION) (TBL./INJECTIONS ALTERNATE AS AGREED WITH HER DOCTOR; CURRENTLY HAD INJECT
     Route: 065
  5. GABAPENTIN [Concomitant]
     Active Substance: GABAPENTIN
     Indication: Paraesthesia
     Dosage: 300 MG, TID
     Route: 065
  6. GABAPENTIN [Concomitant]
     Active Substance: GABAPENTIN
     Indication: Burning sensation
     Dosage: 400 MG, TID
     Route: 065
  7. GABAPENTIN [Concomitant]
     Active Substance: GABAPENTIN
     Indication: Hypoaesthesia
  8. IBUPROFEN [Concomitant]
     Active Substance: IBUPROFEN
     Indication: Product used for unknown indication
     Dosage: 400 MG
     Route: 065
     Dates: start: 20220627

REACTIONS (10)
  - Spinal pain [Not Recovered/Not Resolved]
  - Dyspnoea [Not Recovered/Not Resolved]
  - Paraesthesia [Not Recovered/Not Resolved]
  - Myalgia [Recovered/Resolved]
  - Headache [Recovered/Resolved]
  - Fatigue [Recovered/Resolved]
  - Heat exhaustion [Unknown]
  - Sleep disorder [Unknown]
  - Palpitations [Unknown]
  - Fatigue [Not Recovered/Not Resolved]

NARRATIVE: CASE EVENT DATE: 20220101
